FAERS Safety Report 10003509 (Version 2)
Quarter: 2014Q1

REPORT INFORMATION
  Report Type: Spontaneous
  Country: ES (occurrence: ES)
  Receive Date: 20140312
  Receipt Date: 20140312
  Transmission Date: 20141002
  Serious: Yes (Death, Other)
  Sender: FDA-Public Use
  Company Number: ES-OTSUKA-US-2014-10073

PATIENT
  Sex: 0

DRUGS (3)
  1. BUSULFEX [Suspect]
     Indication: STEM CELL TRANSPLANT
     Dosage: 3.2 MG/KG, QD
     Route: 042
  2. FLUDARABINE [Suspect]
     Indication: STEM CELL TRANSPLANT
     Dosage: 40 MG/M2, UNK
  3. CALCINEURIN INHIBITORS [Concomitant]
     Indication: PRODUCT USED FOR UNKNOWN INDICATION

REACTIONS (15)
  - Acute graft versus host disease [Fatal]
  - Chronic graft versus host disease [Fatal]
  - Lung disorder [Unknown]
  - Death [Fatal]
  - Infection [Fatal]
  - Mucosal inflammation [Unknown]
  - Gastrointestinal toxicity [Unknown]
  - Cardiotoxicity [Unknown]
  - Neurotoxicity [Unknown]
  - Hepatotoxicity [Unknown]
  - Nephropathy toxic [Unknown]
  - Transplant failure [Unknown]
  - Venoocclusive disease [Unknown]
  - Malignant neoplasm progression [Fatal]
  - Off label use [Unknown]
